FAERS Safety Report 9999373 (Version 2)
Quarter: 2014Q1

REPORT INFORMATION
  Report Type: Report from Study
  Country: DE (occurrence: DE)
  Receive Date: 20140312
  Receipt Date: 20140321
  Transmission Date: 20141002
  Serious: Yes (Hospitalization, Other)
  Sender: FDA-Public Use
  Company Number: DE-ROCHE-1363086

PATIENT
  Age: 88 Year
  Sex: Male

DRUGS (2)
  1. LUCENTIS [Suspect]
     Indication: AGE-RELATED MACULAR DEGENERATION
     Route: 050
     Dates: start: 20090107
  2. LUCENTIS [Suspect]
     Route: 050
     Dates: start: 20130912

REACTIONS (4)
  - Vertigo positional [Recovering/Resolving]
  - Choroidal neovascularisation [Unknown]
  - Visual acuity reduced [Unknown]
  - Retinal oedema [Unknown]
